FAERS Safety Report 9801944 (Version 1)
Quarter: 2014Q1

REPORT INFORMATION
  Report Type: Spontaneous
  Country: FR (occurrence: FR)
  Receive Date: 20140107
  Receipt Date: 20140107
  Transmission Date: 20141002
  Serious: No
  Sender: FDA-Public Use
  Company Number: FR-JNJFOC-20140101176

PATIENT
  Age: 45 Year
  Sex: Female

DRUGS (1)
  1. DUROGESIC [Suspect]
     Indication: PRODUCT USED FOR UNKNOWN INDICATION
     Dosage: STARTED FOR A LONG TIME
     Route: 062

REACTIONS (3)
  - Product quality issue [Unknown]
  - Pain [Unknown]
  - Drug dose omission [Unknown]
